FAERS Safety Report 6088697-4 (Version None)
Quarter: 2009Q1

REPORT INFORMATION
  Report Type: 
  Country: None (occurrence: None)
  Receive Date: 20090220
  Receipt Date: 20090220
  Transmission Date: 20090719
  Serious: Yes (Hospitalization)
  Sender: FDA-Public Use
  Company Number: None

PATIENT
  Age: 71 Year
  Sex: Male
  Weight: 96.6 kg

DRUGS (1)
  1. SUNITINIB [Suspect]
     Indication: RENAL CELL CARCINOMA
     Dosage: 50 MG EVERY DAY PO
     Route: 048
     Dates: start: 20090105, end: 20090127

REACTIONS (5)
  - CHILLS [None]
  - LEUKOPENIA [None]
  - NEUTROPENIA [None]
  - PYREXIA [None]
  - THROMBOCYTOPENIA [None]
